FAERS Safety Report 6424969-9 (Version None)
Quarter: 2009Q4

REPORT INFORMATION
  Report Type: 
  Country: None (occurrence: None)
  Receive Date: 20091103
  Receipt Date: 20091027
  Transmission Date: 20100525
  Serious: Yes (Hospitalization, Other)
  Sender: FDA-Public Use
  Company Number: US-ELI_LILLY_AND_COMPANY-US200910006785

PATIENT
  Sex: Female
  Weight: 62.585 kg

DRUGS (3)
  1. HUMULIN 70/30 [Suspect]
     Dosage: UNK, UNK
     Dates: start: 19990101
  2. PREVACID [Concomitant]
     Indication: DYSPEPSIA
  3. PLAVIX [Concomitant]

REACTIONS (19)
  - ABDOMINAL DISCOMFORT [None]
  - ARTERIAL THERAPEUTIC PROCEDURE [None]
  - BLOOD GLUCOSE DECREASED [None]
  - BLOOD GLUCOSE INCREASED [None]
  - CHEST DISCOMFORT [None]
  - DIZZINESS [None]
  - DYSPEPSIA [None]
  - GASTRIC HAEMORRHAGE [None]
  - INCORRECT DOSE ADMINISTERED [None]
  - LIMB INJURY [None]
  - MALABSORPTION FROM INJECTION SITE [None]
  - MOBILITY DECREASED [None]
  - NEOPLASM MALIGNANT [None]
  - PERICARDIAL EFFUSION [None]
  - RASH MACULAR [None]
  - RECTAL HAEMORRHAGE [None]
  - WEIGHT DECREASED [None]
  - WEIGHT INCREASED [None]
  - WRONG TECHNIQUE IN DRUG USAGE PROCESS [None]
